FAERS Safety Report 14646181 (Version 1)
Quarter: 2018Q1

REPORT INFORMATION
  Report Type: Spontaneous
  Country: DE (occurrence: DE)
  Receive Date: 20180316
  Receipt Date: 20180316
  Transmission Date: 20180509
  Serious: Yes (Hospitalization)
  Sender: FDA-Public Use
  Company Number: DE-WEST-WARD PHARMACEUTICALS CORP.-DE-H14001-18-01861

PATIENT
  Age: 60 Year
  Sex: Male
  Weight: 149 kg

DRUGS (5)
  1. MABTHERA [Suspect]
     Active Substance: RITUXIMAB
     Indication: DIFFUSE LARGE B-CELL LYMPHOMA
     Route: 042
     Dates: start: 20161123, end: 20161123
  2. CYCLOPHOSPHAMIDE. [Suspect]
     Active Substance: CYCLOPHOSPHAMIDE
     Indication: LYMPHOMA
     Route: 042
     Dates: start: 20161122
  3. DOXORUBICIN [Suspect]
     Active Substance: DOXORUBICIN
     Indication: LYMPHOMA
     Route: 042
     Dates: start: 20161122
  4. VINCRISTIN [Suspect]
     Active Substance: VINCRISTINE
     Indication: LYMPHOMA
     Route: 042
     Dates: start: 20161122
  5. MABTHERA [Suspect]
     Active Substance: RITUXIMAB
     Route: 058
     Dates: start: 20161122, end: 20170418

REACTIONS (6)
  - Leukopenia [Unknown]
  - Febrile infection [Unknown]
  - Pyrexia [Recovered/Resolved]
  - Dyspnoea [Unknown]
  - Constipation [Unknown]
  - Cough [Unknown]

NARRATIVE: CASE EVENT DATE: 20161221
